FAERS Safety Report 21327650 (Version 1)
Quarter: 2022Q3

REPORT INFORMATION
  Report Type: Spontaneous
  Country: IT (occurrence: IT)
  Receive Date: 20220913
  Receipt Date: 20220913
  Transmission Date: 20221027
  Serious: Yes (Other)
  Sender: FDA-Public Use
  Company Number: None

PATIENT
  Sex: Female
  Weight: 49 kg

DRUGS (1)
  1. QUETIAPINE [Suspect]
     Active Substance: QUETIAPINE
     Indication: Major depression
     Dosage: ORALLY, SINGLE ADMINISTRATION 04/09/2021

REACTIONS (2)
  - Erythema [Recovered/Resolved]
  - Laryngospasm [Recovered/Resolved]

NARRATIVE: CASE EVENT DATE: 20210904
